FAERS Safety Report 12442664 (Version 1)
Quarter: 2016Q2

REPORT INFORMATION
  Report Type: Spontaneous
  Country: US (occurrence: None)
  Receive Date: 20160606
  Receipt Date: 20160606
  Transmission Date: 20160815
  Serious: Yes (Disabling)
  Sender: FDA-Public Use
  Company Number: None

PATIENT
  Age: 45 Year
  Sex: Female
  Weight: 102.06 kg

DRUGS (6)
  1. OMEPROZOLE [Concomitant]
     Active Substance: OMEPRAZOLE
  2. CIPROFLOXICN [Suspect]
     Active Substance: CIPROFLOXACIN
     Indication: INFECTION
     Dosage: 20 TABLETS TWICE A DAY
     Route: 048
     Dates: start: 20160415, end: 20160418
  3. IRON [Concomitant]
     Active Substance: IRON
  4. MULTIVITAMIN [Suspect]
     Active Substance: VITAMINS
  5. POTASSIUM [Suspect]
     Active Substance: POTASSIUM
  6. MAGNESIUM [Concomitant]
     Active Substance: MAGNESIUM

REACTIONS (8)
  - Musculoskeletal pain [None]
  - Gait disturbance [None]
  - Arthralgia [None]
  - Visual impairment [None]
  - Fatigue [None]
  - Nausea [None]
  - Pain in extremity [None]
  - Drug ineffective [None]

NARRATIVE: CASE EVENT DATE: 20160417
